FAERS Safety Report 17491415 (Version 2)
Quarter: 2020Q1

REPORT INFORMATION
  Report Type: Spontaneous
  Country: JP (occurrence: JP)
  Receive Date: 20200304
  Receipt Date: 20200305
  Transmission Date: 20200409
  Serious: Yes (Death, Other)
  Sender: FDA-Public Use
  Company Number: JP-AMGEN-JPNSP2020036082

PATIENT
  Age: 74 Year
  Sex: Female

DRUGS (1)
  1. VECTIBIX [Suspect]
     Active Substance: PANITUMUMAB
     Indication: COLORECTAL CANCER METASTATIC
     Dosage: 6 MILLIGRAM/KILOGRAM
     Route: 042
     Dates: start: 20160121

REACTIONS (2)
  - Disease progression [Fatal]
  - Colorectal cancer metastatic [Fatal]

NARRATIVE: CASE EVENT DATE: 201608
